FAERS Safety Report 7679606-2 (Version None)
Quarter: 2011Q3

REPORT INFORMATION
  Report Type: 
  Country: None (occurrence: None)
  Receive Date: 20110812
  Receipt Date: 20110801
  Transmission Date: 20111222
  Serious: Yes (Hospitalization, Other)
  Sender: FDA-Public Use
  Company Number: US-AMGEN-USASP2011038856

PATIENT
  Age: 54 Year
  Sex: Female

DRUGS (2)
  1. METHOTREXATE [Concomitant]
  2. ENBREL [Suspect]
     Indication: RHEUMATOID ARTHRITIS
     Dates: start: 20090311

REACTIONS (5)
  - BREAST CANCER [None]
  - INJECTION SITE RASH [None]
  - LYMPHADENOPATHY [None]
  - URINARY TRACT INFECTION [None]
  - ARTHRALGIA [None]
